FAERS Safety Report 23707414 (Version 3)
Quarter: 2024Q2

REPORT INFORMATION
  Report Type: Spontaneous
  Country: US (occurrence: US)
  Receive Date: 20240404
  Receipt Date: 20240621
  Transmission Date: 20240715
  Serious: No
  Sender: FDA-Public Use
  Company Number: US-KARYOPHARM-2023KPT002264

PATIENT

DRUGS (14)
  1. XPOVIO [Suspect]
     Active Substance: SELINEXOR
     Indication: Plasma cell myeloma
     Dosage: 80 MG, WEEKLY EVERY 7 DAYS
     Route: 048
     Dates: start: 20231120
  2. POMALYST [Concomitant]
     Active Substance: POMALIDOMIDE
     Indication: Plasma cell myeloma
     Dosage: 2 MG, QD ON DAYS 1 TO 21 OF EACH 28-DAY CYCLE
     Route: 048
     Dates: end: 202402
  3. ACYCLOVIR [Concomitant]
     Active Substance: ACYCLOVIR
  4. ALFUZOSIN [Concomitant]
     Active Substance: ALFUZOSIN
  5. ATOVAQUONE [Concomitant]
     Active Substance: ATOVAQUONE
  6. DEXAMETHASONE [Concomitant]
     Active Substance: DEXAMETHASONE
  7. GABAPENTIN [Concomitant]
     Active Substance: GABAPENTIN
  8. METHIMAZOLE [Concomitant]
     Active Substance: METHIMAZOLE
  9. NYSTATIN [Concomitant]
     Active Substance: NYSTATIN
  10. ONDANSETRON [Concomitant]
     Active Substance: ONDANSETRON
  11. OXYCODONE [Concomitant]
     Active Substance: OXYCODONE\OXYCODONE HYDROCHLORIDE
  12. POSACONAZOLE [Concomitant]
     Active Substance: POSACONAZOLE
  13. ZARXIO [Concomitant]
     Active Substance: FILGRASTIM-SNDZ
  14. ZOFRAN [Concomitant]
     Active Substance: ONDANSETRON HYDROCHLORIDE

REACTIONS (14)
  - Abdominal pain upper [Unknown]
  - Ageusia [Not Recovered/Not Resolved]
  - Taste disorder [Unknown]
  - Flatulence [Unknown]
  - Abdominal distension [Unknown]
  - Anosmia [Unknown]
  - Nausea [Not Recovered/Not Resolved]
  - Diarrhoea [Not Recovered/Not Resolved]
  - Decreased appetite [Not Recovered/Not Resolved]
  - White blood cell count decreased [Not Recovered/Not Resolved]
  - Neutrophil count decreased [Unknown]
  - Vomiting [Unknown]
  - Weight decreased [Not Recovered/Not Resolved]
  - Product dose omission issue [Unknown]

NARRATIVE: CASE EVENT DATE: 20230101
